FAERS Safety Report 14709837 (Version 2)
Quarter: 2018Q4

REPORT INFORMATION
  Report Type: Spontaneous
  Country: US (occurrence: US)
  Receive Date: 20180403
  Receipt Date: 20181017
  Transmission Date: 20190204
  Serious: Yes (Other)
  Sender: FDA-Public Use
  Company Number: US-BAYER-2018-060455

PATIENT
  Age: 56 Year
  Sex: Male

DRUGS (2)
  1. GADAVIST [Suspect]
     Active Substance: GADOBUTROL
     Indication: INTERVERTEBRAL DISC DEGENERATION
     Dosage: UNK UNK, ONCE
     Route: 042
     Dates: start: 20171010, end: 20171010
  2. GADAVIST [Suspect]
     Active Substance: GADOBUTROL
     Indication: NUCLEAR MAGNETIC RESONANCE IMAGING BRAIN

REACTIONS (8)
  - Confusional state [None]
  - Contrast media reaction [None]
  - Vascular pain [None]
  - Feeling abnormal [None]
  - Intelligence test abnormal [None]
  - Burning sensation [None]
  - Immune system disorder [None]
  - Head discomfort [None]

NARRATIVE: CASE EVENT DATE: 201710
